FAERS Safety Report 6678309-0 (Version None)
Quarter: 2010Q2

REPORT INFORMATION
  Report Type: 
  Country: None (occurrence: None)
  Receive Date: 20100413
  Receipt Date: 20100331
  Transmission Date: 20101027
  Serious: Yes (Other)
  Sender: FDA-Public Use
  Company Number: US-BIOGENIDEC-2010BI011924

PATIENT
  Age: 29 Year
  Sex: Female

DRUGS (3)
  1. AVONEX [Suspect]
     Indication: MULTIPLE SCLEROSIS
     Route: 030
     Dates: start: 19961201, end: 20001201
  2. AVONEX [Suspect]
     Route: 030
     Dates: start: 20011001, end: 20021002
  3. AVONEX [Suspect]
     Route: 030
     Dates: start: 20060901, end: 20070416

REACTIONS (1)
  - BREECH DELIVERY [None]
